FAERS Safety Report 13915196 (Version 1)
Quarter: 2017Q3

REPORT INFORMATION
  Report Type: Spontaneous
  Country: US (occurrence: US)
  Receive Date: 20170829
  Receipt Date: 20170829
  Transmission Date: 20171127
  Serious: No
  Sender: FDA-Public Use
  Company Number: PHEH2017US026850

PATIENT
  Age: 74 Year
  Sex: Female

DRUGS (1)
  1. ILARIS [Suspect]
     Active Substance: CANAKINUMAB
     Indication: COLD URTICARIA
     Dosage: 150 MG, EVERY 8 WEEKS
     Route: 058
     Dates: start: 20170106, end: 20170818

REACTIONS (2)
  - Injection site pain [Unknown]
  - Injection site swelling [Unknown]
